FAERS Safety Report 9789045 (Version 1)
Quarter: 2013Q4

REPORT INFORMATION
  Report Type: Report from Study
  Country: JP (occurrence: JP)
  Receive Date: 20131230
  Receipt Date: 20131230
  Transmission Date: 20140711
  Serious: Yes (Death, Other)
  Sender: FDA-Public Use
  Company Number: JP-009507513-1312JPN012403

PATIENT
  Sex: 0

DRUGS (15)
  1. GANIRELIX ACETATE [Suspect]
     Indication: PREVENTION OF PREMATURE OVULATION
     Dosage: 0.25 MG, QD
     Route: 064
     Dates: start: 20111117, end: 20111120
  2. PLANOVAR [Concomitant]
     Indication: IN VITRO FERTILISATION
     Dosage: 1 DF, QD
     Route: 064
     Dates: start: 20111025, end: 20111105
  3. GONAL-F [Concomitant]
     Indication: IN VITRO FERTILISATION
     Dosage: 187.5 UNDER 1000 UNIT, QD
     Route: 064
     Dates: start: 20111111, end: 20111114
  4. GONAL-F [Concomitant]
     Dosage: 150 UNDER 100 UNIT, QD
     Route: 064
     Dates: start: 20111116, end: 20111116
  5. MENOTROPINS [Concomitant]
     Indication: IN VITRO FERTILISATION
     Dosage: 75 UNDER 1000 UNIT, QD
     Route: 064
     Dates: start: 20111115, end: 20111115
  6. MENOTROPINS [Concomitant]
     Dosage: 150 UNDER 1000 UNIT, QD
     Route: 064
     Dates: start: 20111117, end: 20111120
  7. FOLYRMON P [Concomitant]
     Indication: IN VITRO FERTILISATION
     Dosage: 150 UNDER 1000 UNIT, QD
     Route: 064
     Dates: start: 20111115, end: 20111115
  8. BUSERECUR [Concomitant]
     Indication: OVULATION INDUCTION
     Dosage: 600 MICROGRAM, QD
     Route: 064
     Dates: start: 20111120, end: 20111120
  9. JULINA [Concomitant]
     Indication: IN VITRO FERTILISATION
     Dosage: 3 MG, DIVIDED DOSE FREQUENCY  U
     Route: 064
     Dates: start: 20120218, end: 20120326
  10. BUFFERIN [Concomitant]
     Indication: IN VITRO FERTILISATION
     Dosage: 81 MG, DIVIDED DOSE FREQUENCY U
     Route: 064
     Dates: start: 20120218, end: 20120326
  11. OOPHORMIN LUTEUM [Concomitant]
     Indication: IN VITRO FERTILISATION
     Dosage: 125 MG, DIVIDED DOSE FREQUENCY U
     Route: 064
     Dates: start: 20120317, end: 20120317
  12. OOPHORMIN LUTEUM [Concomitant]
     Dosage: 125 MG, DIVIDED DOSE FREQUENCY U
     Route: 064
     Dates: start: 20120324, end: 20120324
  13. PROGESTERONE [Concomitant]
     Indication: IN VITRO FERTILISATION
     Dosage: 200 MG, DIVIDED DOSE FREQUENCY U
     Route: 064
     Dates: start: 20120311, end: 20120316
  14. PROGESTERONE [Concomitant]
     Dosage: 200 MG, DIVIDED DOSE FREQUENCY U
     Route: 064
     Dates: start: 20120318, end: 20120323
  15. PROGESTERONE [Concomitant]
     Dosage: 200 MG, DIVIDED DOSE FREQUENCY U
     Route: 064
     Dates: start: 20120325, end: 20120325

REACTIONS (2)
  - Cytogenetic abnormality [Fatal]
  - Foetal exposure during pregnancy [Unknown]
